FAERS Safety Report 10356595 (Version 1)
Quarter: 2014Q3

REPORT INFORMATION
  Report Type: Spontaneous
  Country: US (occurrence: None)
  Receive Date: 20140730
  Receipt Date: 20140730
  Transmission Date: 20150326
  Serious: No
  Sender: FDA-Public Use
  Company Number: None

PATIENT
  Age: 59 Year
  Sex: Male
  Weight: 103.1 kg

DRUGS (1)
  1. DABIGATRAN [Suspect]
     Active Substance: DABIGATRAN
     Indication: ATRIAL FIBRILLATION
     Route: 048
     Dates: start: 20140602, end: 20140605

REACTIONS (6)
  - Dyspnoea [None]
  - Therapy cessation [None]
  - Vomiting [None]
  - Rash [None]
  - Refusal of treatment by patient [None]
  - Nausea [None]

NARRATIVE: CASE EVENT DATE: 20140605
